FAERS Safety Report 14042251 (Version 1)
Quarter: 2017Q4

REPORT INFORMATION
  Report Type: Report from Study
  Country: US (occurrence: US)
  Receive Date: 20171004
  Receipt Date: 20171004
  Transmission Date: 20180321
  Serious: No
  Sender: FDA-Public Use
  Company Number: US-AMGEN-USASL2016145029

PATIENT
  Age: 86 Year
  Sex: Female
  Weight: 62.59 kg

DRUGS (1)
  1. PROLIA [Suspect]
     Active Substance: DENOSUMAB
     Indication: OSTEOPOROSIS
     Dosage: 60 MG, Q6MO
     Route: 030
     Dates: start: 20160916

REACTIONS (3)
  - Cystitis [Unknown]
  - Off label use [Unknown]
  - Sinus pain [Unknown]
